FAERS Safety Report 5444986-5 (Version None)
Quarter: 2007Q3

REPORT INFORMATION
  Report Type: 
  Country: None (occurrence: None)
  Receive Date: 20070904
  Receipt Date: 20070904
  Transmission Date: 20080115
  Serious: Yes (Life-Threatening, Hospitalization)
  Sender: FDA-Public Use
  Company Number: None

PATIENT
  Age: 50 Year
  Sex: Male
  Weight: 95.2554 kg

DRUGS (1)
  1. SUBOXONE [Suspect]
     Indication: SUBSTANCE ABUSE
     Dosage: TWO TABLETS DAILY SL
     Route: 060
     Dates: start: 20070815, end: 20070817

REACTIONS (5)
  - ACUTE RESPIRATORY DISTRESS SYNDROME [None]
  - NO THERAPEUTIC RESPONSE [None]
  - NON-CARDIOGENIC PULMONARY OEDEMA [None]
  - PNEUMONIA [None]
  - RESPIRATORY DISTRESS [None]
